FAERS Safety Report 25934316 (Version 1)
Quarter: 2025Q4

REPORT INFORMATION
  Report Type: Report from Study
  Country: US (occurrence: US)
  Receive Date: 20251017
  Receipt Date: 20251017
  Transmission Date: 20260117
  Serious: Yes (Other)
  Sender: MYLAN
  Company Number: US-MYLANLABS-2025M1085317

PATIENT
  Sex: Female

DRUGS (3)
  1. GABAPENTIN [Suspect]
     Active Substance: GABAPENTIN
     Indication: Sleep disorder
     Dosage: 300 MILLIGRAM, PM  (ONCE NIGHTLY)
  2. GABAPENTIN [Suspect]
     Active Substance: GABAPENTIN
     Dosage: BID, (600 MG FOR DAYTIME DOSE AND 900 MG FOR NIGHTTIME DOSE)
     Dates: start: 2025
  3. LORBRENA [Suspect]
     Active Substance: LORLATINIB
     Indication: Lung neoplasm malignant
     Dosage: 75 MILLIGRAM, QD (ONCE DAILY)
     Dates: start: 20250623

REACTIONS (11)
  - Neuropathy peripheral [Unknown]
  - Wheezing [Unknown]
  - Memory impairment [Unknown]
  - Blood cholesterol increased [Unknown]
  - Fatigue [Not Recovered/Not Resolved]
  - Asthenia [Unknown]
  - Cough [Unknown]
  - Weight increased [Unknown]
  - Oedema [Recovering/Resolving]
  - Anxiety [Recovering/Resolving]
  - Off label use [Unknown]

NARRATIVE: CASE EVENT DATE: 20250101
